FAERS Safety Report 6698784-5 (Version None)
Quarter: 2010Q2

REPORT INFORMATION
  Report Type: 
  Country: None (occurrence: None)
  Receive Date: 20100427
  Receipt Date: 20100419
  Transmission Date: 20101027
  Serious: Yes (Hospitalization)
  Sender: FDA-Public Use
  Company Number: PHHY2010JP25624

PATIENT

DRUGS (4)
  1. VOLTAREN [Suspect]
     Indication: ANALGESIC THERAPY
     Dosage: 100 MG, PRN
     Route: 054
  2. PRAVASTATIN SODIUM [Concomitant]
     Route: 048
  3. URINORM [Concomitant]
     Route: 048
  4. ALLOPURINOL [Concomitant]
     Route: 048

REACTIONS (3)
  - GASTRIC DISORDER [None]
  - GASTRIC ULCER HAEMORRHAGE [None]
  - HAEMATEMESIS [None]
